FAERS Safety Report 22270692 (Version 1)
Quarter: 2023Q2

REPORT INFORMATION
  Report Type: Report from Study
  Country: BR (occurrence: BR)
  Receive Date: 20230501
  Receipt Date: 20230501
  Transmission Date: 20230722
  Serious: Yes (Other)
  Sender: FDA-Public Use
  Company Number: BR-UCBSA-2023004925

PATIENT
  Sex: Female
  Weight: 67 kg

DRUGS (1)
  1. CERTOLIZUMAB PEGOL [Suspect]
     Active Substance: CERTOLIZUMAB PEGOL
     Indication: Rheumatoid arthritis
     Dosage: 200 MILLIGRAM, EV 15 DAYS (STARTED 5 YEARS AGO)
     Route: 058
     Dates: start: 2018

REACTIONS (7)
  - Immunodeficiency [Unknown]
  - Coccydynia [Not Recovered/Not Resolved]
  - Knee operation [Unknown]
  - Pelvic deformity [Unknown]
  - Herpes virus infection [Unknown]
  - Product availability issue [Unknown]
  - Therapy interrupted [Unknown]
